FAERS Safety Report 6603762-8 (Version None)
Quarter: 2010Q1

REPORT INFORMATION
  Report Type: 
  Country: None (occurrence: None)
  Receive Date: 20100226
  Receipt Date: 20090206
  Transmission Date: 20100710
  Serious: No
  Sender: FDA-Public Use
  Company Number: A0764526A

PATIENT
  Age: 38 Year
  Sex: Female

DRUGS (4)
  1. LAMICTAL CD [Suspect]
     Indication: BIPOLAR DISORDER
     Route: 048
     Dates: start: 20070901
  2. INTRAVENOUS CONTRAST [Suspect]
  3. ATIVAN [Concomitant]
     Dosage: .5MG AS REQUIRED
     Route: 048
  4. PROZAC [Concomitant]

REACTIONS (4)
  - RASH [None]
  - STOMATITIS [None]
  - SWOLLEN TONGUE [None]
  - TONSILLITIS [None]
